FAERS Safety Report 26081506 (Version 1)
Quarter: 2025Q4

REPORT INFORMATION
  Report Type: Spontaneous
  Country: US (occurrence: US)
  Receive Date: 20251124
  Receipt Date: 20251124
  Transmission Date: 20260118
  Serious: No
  Sender: SANOFI AVENTIS
  Company Number: US-SA-2025SA350023

PATIENT
  Sex: Female

DRUGS (13)
  1. DUPIXENT [Suspect]
     Active Substance: DUPILUMAB
     Indication: Nasal polyps
     Dosage: 300 MG, QOW
     Route: 058
     Dates: start: 20251013
  2. DILTIAZEM [Concomitant]
     Active Substance: DILTIAZEM
  3. LIPITOR [Concomitant]
     Active Substance: ATORVASTATIN CALCIUM
  4. ESTRADIOL [Concomitant]
     Active Substance: ESTRADIOL
  5. XARELTO [Concomitant]
     Active Substance: RIVAROXABAN
  6. BREO ELLIPTA [Concomitant]
     Active Substance: FLUTICASONE FUROATE\VILANTEROL TRIFENATATE
  7. TUMS [Concomitant]
     Active Substance: CALCIUM CARBONATE
  8. MUPIROCIN [Concomitant]
     Active Substance: MUPIROCIN
  9. SINGULAIR [Concomitant]
     Active Substance: MONTELUKAST SODIUM
  10. FLUTICASONE FUROATE\SALMETEROL XINAFOATE [Concomitant]
     Active Substance: FLUTICASONE FUROATE\SALMETEROL XINAFOATE
  11. DOXYCYCLINE HYCLATE [Concomitant]
     Active Substance: DOXYCYCLINE HYCLATE
  12. CLARITIN [Concomitant]
     Active Substance: LORATADINE
  13. AZELASTINE HYDROCHLORIDE [Concomitant]
     Active Substance: AZELASTINE HYDROCHLORIDE

REACTIONS (3)
  - Alcohol intolerance [Unknown]
  - Feeling abnormal [Unknown]
  - Product administered at inappropriate site [Unknown]
